FAERS Safety Report 6542400-X (Version None)
Quarter: 2010Q1

REPORT INFORMATION
  Report Type: 
  Country: None (occurrence: None)
  Receive Date: 20100119
  Receipt Date: 20100114
  Transmission Date: 20100710
  Serious: Yes (Death, Hospitalization)
  Sender: FDA-Public Use
  Company Number: PHHY2009CA39777

PATIENT
  Sex: Female

DRUGS (4)
  1. SANDOSTATIN LAR [Suspect]
     Indication: NEUROENDOCRINE TUMOUR
     Dosage: 20 MG, EVERY 4 WEEKS
     Route: 030
     Dates: start: 20090805
  2. SANDOSTATIN LAR [Suspect]
     Dosage: 30 MG, EVERY 4 WEEKS
     Route: 030
     Dates: end: 20091203
  3. CHEMOTHERAPEUTICS NOS [Concomitant]
  4. INFLUENZA VACCINES [Concomitant]

REACTIONS (12)
  - ABDOMINAL PAIN [None]
  - ARTHRALGIA [None]
  - COLOSTOMY [None]
  - DEATH [None]
  - DIARRHOEA [None]
  - FATIGUE [None]
  - GASTROINTESTINAL OBSTRUCTION [None]
  - GASTROINTESTINAL STOMA COMPLICATION [None]
  - MASS [None]
  - PNEUMONIA [None]
  - PYREXIA [None]
  - VOMITING [None]
